FAERS Safety Report 6801641-4 (Version None)
Quarter: 2010Q2

REPORT INFORMATION
  Report Type: 
  Country: None (occurrence: None)
  Receive Date: 20100629
  Receipt Date: 20100624
  Transmission Date: 20101027
  Serious: Yes (Life-Threatening, Hospitalization)
  Sender: FDA-Public Use
  Company Number: ZA-ASTRAZENECA-2010SE21851

PATIENT
  Age: 35 Year
  Sex: Female

DRUGS (6)
  1. SEROQUEL XR [Suspect]
     Indication: MAJOR DEPRESSION
     Route: 048
     Dates: start: 20100305
  2. SEROQUEL XR [Suspect]
     Dosage: 30 TABLETS OF SEROQUEL XR 50 MG
     Route: 048
     Dates: end: 20100510
  3. WELLBUTRIN XL [Suspect]
     Indication: MAJOR DEPRESSION
     Route: 048
     Dates: start: 20100324
  4. WELLBUTRIN XL [Suspect]
     Route: 048
     Dates: end: 20100510
  5. CONCOR [Concomitant]
     Indication: HYPERTENSION
  6. AMLOC [Concomitant]
     Indication: HYPERTENSION

REACTIONS (3)
  - CONVULSION [None]
  - OVERDOSE [None]
  - SUICIDE ATTEMPT [None]
